FAERS Safety Report 6994631-2 (Version None)
Quarter: 2010Q3

REPORT INFORMATION
  Report Type: 
  Country: None (occurrence: None)
  Receive Date: 20100915
  Receipt Date: 20100915
  Transmission Date: 20110219
  Serious: Yes (Hospitalization)
  Sender: FDA-Public Use
  Company Number: None

PATIENT
  Age: 91 Year
  Sex: Male
  Weight: 70 kg

DRUGS (2)
  1. LISINOPRIL [Suspect]
     Indication: HYPERTENSION
     Dates: start: 20091201, end: 20100220
  2. CELECOXIB [Suspect]
     Indication: PAIN
     Dosage: 200 MG PRN PO
     Route: 048
     Dates: start: 20091201, end: 20100220

REACTIONS (1)
  - RENAL FAILURE ACUTE [None]
